FAERS Safety Report 24339978 (Version 3)
Quarter: 2024Q4

REPORT INFORMATION
  Report Type: Spontaneous
  Country: JP (occurrence: JP)
  Receive Date: 20240919
  Receipt Date: 20241122
  Transmission Date: 20250114
  Serious: Yes (Death, Hospitalization)
  Sender: DAIICHI
  Company Number: JP-DAIICHI SANKYO, INC.-DSJ-2024-138390

PATIENT
  Age: 65 Year
  Sex: Female
  Weight: 68 kg

DRUGS (37)
  1. ENHERTU [Suspect]
     Active Substance: FAM-TRASTUZUMAB DERUXTECAN-NXKI
     Indication: HER2 low breast cancer
     Dosage: 372 MG, ONCE EVERY 3 WK
     Route: 041
     Dates: start: 20230224, end: 20230224
  2. ENHERTU [Suspect]
     Active Substance: FAM-TRASTUZUMAB DERUXTECAN-NXKI
     Dosage: 372 MG, ONCE EVERY 3 WK
     Route: 041
     Dates: start: 20230320, end: 20230320
  3. ENHERTU [Suspect]
     Active Substance: FAM-TRASTUZUMAB DERUXTECAN-NXKI
     Dosage: 372 MG, ONCE EVERY 3 WK
     Route: 041
     Dates: start: 20230410, end: 20230410
  4. ENHERTU [Suspect]
     Active Substance: FAM-TRASTUZUMAB DERUXTECAN-NXKI
     Dosage: 372 MG, ONCE EVERY 3 WK
     Route: 041
     Dates: start: 20230501, end: 20230501
  5. ENHERTU [Suspect]
     Active Substance: FAM-TRASTUZUMAB DERUXTECAN-NXKI
     Dosage: 372 MG, ONCE EVERY 3 WK
     Route: 041
     Dates: start: 20230522, end: 20230522
  6. ENHERTU [Suspect]
     Active Substance: FAM-TRASTUZUMAB DERUXTECAN-NXKI
     Dosage: 372 MG, ONCE EVERY 3 WK
     Route: 041
     Dates: start: 20230612, end: 20230612
  7. ENHERTU [Suspect]
     Active Substance: FAM-TRASTUZUMAB DERUXTECAN-NXKI
     Dosage: 372 MG, ONCE EVERY 3 WK
     Route: 041
     Dates: start: 20230703, end: 20230703
  8. ENHERTU [Suspect]
     Active Substance: FAM-TRASTUZUMAB DERUXTECAN-NXKI
     Dosage: 372 MG, ONCE EVERY 3 WK
     Route: 041
     Dates: start: 20230724, end: 20230724
  9. ENHERTU [Suspect]
     Active Substance: FAM-TRASTUZUMAB DERUXTECAN-NXKI
     Dosage: 372 MG, ONCE EVERY 3 WK
     Route: 041
     Dates: start: 20230814, end: 20230814
  10. ENHERTU [Suspect]
     Active Substance: FAM-TRASTUZUMAB DERUXTECAN-NXKI
     Dosage: 372 MG, ONCE EVERY 3 WK
     Route: 041
     Dates: start: 20230904, end: 20230904
  11. ENHERTU [Suspect]
     Active Substance: FAM-TRASTUZUMAB DERUXTECAN-NXKI
     Dosage: 372 MG, ONCE EVERY 3 WK
     Route: 041
     Dates: start: 20230925, end: 20230925
  12. ENHERTU [Suspect]
     Active Substance: FAM-TRASTUZUMAB DERUXTECAN-NXKI
     Dosage: 372 MG, ONCE EVERY 3 WK
     Route: 041
     Dates: start: 20231016, end: 20231016
  13. ENHERTU [Suspect]
     Active Substance: FAM-TRASTUZUMAB DERUXTECAN-NXKI
     Dosage: 372 MG, ONCE EVERY 3 WK
     Route: 041
     Dates: start: 20231106, end: 20231106
  14. ENHERTU [Suspect]
     Active Substance: FAM-TRASTUZUMAB DERUXTECAN-NXKI
     Dosage: 372 MG, ONCE EVERY 3 WK
     Route: 041
     Dates: start: 20231127, end: 20231127
  15. ENHERTU [Suspect]
     Active Substance: FAM-TRASTUZUMAB DERUXTECAN-NXKI
     Dosage: 372 MG, ONCE EVERY 3 WK
     Route: 041
     Dates: start: 20231218, end: 20231218
  16. ENHERTU [Suspect]
     Active Substance: FAM-TRASTUZUMAB DERUXTECAN-NXKI
     Dosage: 372 MG, ONCE EVERY 3 WK
     Route: 041
     Dates: start: 20240108, end: 20240108
  17. ENHERTU [Suspect]
     Active Substance: FAM-TRASTUZUMAB DERUXTECAN-NXKI
     Dosage: 372 MG, ONCE EVERY 3 WK
     Route: 041
     Dates: start: 20240129, end: 20240129
  18. ENHERTU [Suspect]
     Active Substance: FAM-TRASTUZUMAB DERUXTECAN-NXKI
     Dosage: 372 MG, ONCE EVERY 3 WK
     Route: 041
     Dates: start: 20240219, end: 20240219
  19. ENHERTU [Suspect]
     Active Substance: FAM-TRASTUZUMAB DERUXTECAN-NXKI
     Dosage: 372 MG, ONCE EVERY 3 WK
     Route: 041
     Dates: start: 20240311, end: 20240311
  20. ENHERTU [Suspect]
     Active Substance: FAM-TRASTUZUMAB DERUXTECAN-NXKI
     Dosage: 372 MG, ONCE EVERY 3 WK
     Route: 041
  21. ENHERTU [Suspect]
     Active Substance: FAM-TRASTUZUMAB DERUXTECAN-NXKI
     Dosage: 372 MG, ONCE EVERY 3 WK
     Route: 041
  22. ENHERTU [Suspect]
     Active Substance: FAM-TRASTUZUMAB DERUXTECAN-NXKI
     Dosage: 372 MG, ONCE EVERY 3 WK
     Route: 041
  23. ENHERTU [Suspect]
     Active Substance: FAM-TRASTUZUMAB DERUXTECAN-NXKI
     Dosage: 372 MG, ONCE EVERY 3 WK
     Route: 041
     Dates: start: 20240707, end: 20240707
  24. ACETAMINOPHEN\TRAMADOL HYDROCHLORIDE [Concomitant]
     Active Substance: ACETAMINOPHEN\TRAMADOL HYDROCHLORIDE
     Indication: Product used for unknown indication
     Dosage: UNK
     Route: 048
  25. MAGNESIUM OXIDE [Concomitant]
     Active Substance: MAGNESIUM OXIDE
     Indication: Product used for unknown indication
     Dosage: UNK
     Route: 048
  26. MIROGABALIN BESYLATE [Concomitant]
     Active Substance: MIROGABALIN BESYLATE
     Indication: Product used for unknown indication
     Dosage: UNK
     Route: 048
  27. MIROGABALIN BESYLATE [Concomitant]
     Active Substance: MIROGABALIN BESYLATE
     Indication: Product used for unknown indication
     Dosage: UNK
     Route: 048
  28. FLUTIFORM [Concomitant]
     Active Substance: FLUTIFORM
     Indication: Product used for unknown indication
     Dosage: 50
  29. OLANZAPINE [Concomitant]
     Active Substance: OLANZAPINE
     Indication: Product used for unknown indication
     Dosage: UNK
     Route: 048
  30. MIROGABALIN BESYLATE [Concomitant]
     Active Substance: MIROGABALIN BESYLATE
     Indication: Product used for unknown indication
     Dosage: UNK
     Route: 048
  31. SOLU-MEDROL [Concomitant]
     Active Substance: METHYLPREDNISOLONE SODIUM SUCCINATE
     Indication: Product used for unknown indication
     Dosage: UNK
     Route: 042
  32. CALCIUM CHLORIDE ANHYDROUS\POTASSIUM CHLORIDE\SODIUM CHLORIDE\SODIUM L [Concomitant]
     Active Substance: CALCIUM CHLORIDE ANHYDROUS\POTASSIUM CHLORIDE\SODIUM CHLORIDE\SODIUM LACTATE
     Indication: Product used for unknown indication
     Dosage: UNK
     Route: 042
  33. LASCUFLOXACIN HYDROCHLORIDE [Concomitant]
     Active Substance: LASCUFLOXACIN HYDROCHLORIDE
     Indication: Product used for unknown indication
     Dosage: UNK
     Route: 041
  34. CALCIUM CHLORIDE\POTASSIUM CHLORIDE\SODIUM ACETATE\SODIUM CHLORIDE [Concomitant]
     Active Substance: CALCIUM CHLORIDE\POTASSIUM CHLORIDE\SODIUM ACETATE\SODIUM CHLORIDE
     Indication: Product used for unknown indication
     Dosage: UNK
     Route: 042
  35. PREDONINE [Concomitant]
     Active Substance: PREDNISOLONE
     Indication: Product used for unknown indication
     Dosage: UNK
     Route: 042
  36. ATARAX-P [HYDROXYZINE HYDROCHLORIDE] [Concomitant]
     Indication: Product used for unknown indication
     Dosage: UNK
     Route: 042
  37. OMEPRAZOLE [Concomitant]
     Active Substance: OMEPRAZOLE
     Indication: Product used for unknown indication
     Dosage: UNK
     Route: 042

REACTIONS (1)
  - Pulmonary toxicity [Fatal]

NARRATIVE: CASE EVENT DATE: 20240729
